FAERS Safety Report 7432700-3 (Version None)
Quarter: 2011Q2

REPORT INFORMATION
  Report Type: 
  Country: None (occurrence: None)
  Receive Date: 20110422
  Receipt Date: 20110408
  Transmission Date: 20111010
  Serious: Yes (Life-Threatening, Hospitalization, Other)
  Sender: FDA-Public Use
  Company Number: ES-CELGENEUS-144-50794-10060234

PATIENT
  Sex: Female
  Weight: 60 kg

DRUGS (4)
  1. DEXCLORFENIRAMINA [Concomitant]
     Dosage: 6 MILLIGRAM
     Route: 065
     Dates: start: 20090107
  2. VIDAZA [Suspect]
     Dosage: 118 MILLIGRAM
     Route: 050
     Dates: start: 20081204, end: 20081210
  3. PREDNISONE [Suspect]
     Dosage: 60 MILLIGRAM
     Route: 065
     Dates: start: 20090107, end: 20090123
  4. ACICLOVIR [Concomitant]
     Dosage: 800 MILLIGRAM
     Route: 065
     Dates: start: 20090107, end: 20090123

REACTIONS (2)
  - FEBRILE NEUTROPENIA [None]
  - PNEUMONIA FUNGAL [None]
